FAERS Safety Report 7298269-1 (Version None)
Quarter: 2011Q1

REPORT INFORMATION
  Report Type: 
  Country: None (occurrence: None)
  Receive Date: 20110217
  Receipt Date: 20100311
  Transmission Date: 20110831
  Serious: No
  Sender: FDA-Public Use
  Company Number: US-PFIZER INC-2010032528

PATIENT
  Sex: Female
  Weight: 52.6 kg

DRUGS (4)
  1. VALSARTAN [Concomitant]
     Indication: HYPERTENSION
     Dosage: UNK
  2. XALATAN [Suspect]
     Indication: INTRAOCULAR PRESSURE INCREASED
     Dosage: UNK, DAILY
     Dates: start: 20070101
  3. ALPHAGAN [Concomitant]
     Dosage: UNK
  4. COSOPT [Concomitant]
     Dosage: UNK

REACTIONS (2)
  - EYE IRRITATION [None]
  - EYE PAIN [None]
